FAERS Safety Report 21623999 (Version 1)
Quarter: 2022Q4

REPORT INFORMATION
  Report Type: Spontaneous
  Country: US (occurrence: US)
  Receive Date: 20221121
  Receipt Date: 20221121
  Transmission Date: 20230112
  Serious: No
  Sender: FDA-Public Use
  Company Number: US-PERRIGO-22US003724

PATIENT

DRUGS (1)
  1. NICOTINE POLACRILEX [Suspect]
     Active Substance: NICOTINE
     Indication: Nicotine dependence
     Dosage: UNKNOWN, UNKNOWN
     Route: 002
     Dates: start: 202203

REACTIONS (1)
  - Therapeutic product effect delayed [Unknown]

NARRATIVE: CASE EVENT DATE: 20220301
